FAERS Safety Report 26110522 (Version 1)
Quarter: 2025Q4

REPORT INFORMATION
  Report Type: Other
  Country: US (occurrence: US)
  Receive Date: 20251202
  Receipt Date: 20251202
  Transmission Date: 20260118
  Serious: Yes (Other)
  Sender: APPCO PHARMA LLC
  Company Number: US-Appco Pharma LLC-2189602

PATIENT
  Age: 46 Year
  Sex: Female

DRUGS (1)
  1. HYDROXYCHLOROQUINE SULFATE [Suspect]
     Active Substance: HYDROXYCHLOROQUINE SULFATE
     Indication: Systemic lupus erythematosus

REACTIONS (3)
  - Cardiotoxicity [Recovering/Resolving]
  - Heart failure with reduced ejection fraction [Recovering/Resolving]
  - Microvascular coronary artery disease [Recovering/Resolving]
